FAERS Safety Report 4680772-1 (Version None)
Quarter: 2005Q2

REPORT INFORMATION
  Report Type: 
  Country: None (occurrence: None)
  Receive Date: 20050531
  Receipt Date: 20050531
  Transmission Date: 20051028
  Serious: No
  Sender: FDA-Public Use
  Company Number: None

PATIENT
  Age: 70 Year
  Sex: Female

DRUGS (1)
  1. PAROXETINE 20 MG TORPHARM (APOTEX) [Suspect]
     Dosage: 1 TABLET BY MOUTH DAILY
     Dates: start: 20050327, end: 20050518

REACTIONS (3)
  - FALL [None]
  - INSOMNIA [None]
  - SPINAL COMPRESSION FRACTURE [None]
